FAERS Safety Report 9510951 (Version 3)
Quarter: 2013Q3

REPORT INFORMATION
  Report Type: Report from Study
  Country: RU (occurrence: RU)
  Receive Date: 20130910
  Receipt Date: 20130930
  Transmission Date: 20140515
  Serious: Yes (Hospitalization)
  Sender: FDA-Public Use
  Company Number: RU-MERCK-1309RUS001413

PATIENT
  Age: 46 Year
  Sex: Female
  Weight: 71 kg

DRUGS (12)
  1. RIBAVIRIN [Suspect]
     Indication: CHRONIC HEPATITIS C
     Dosage: 2 DF, QD
     Route: 048
     Dates: start: 20130326, end: 20130326
  2. RIBAVIRIN [Suspect]
     Dosage: 2 DF, QAM
     Route: 048
     Dates: start: 20130327, end: 20130527
  3. RIBAVIRIN [Suspect]
     Dosage: 3 DF, QPM
     Route: 048
     Dates: start: 20130326, end: 20130526
  4. RIBAVIRIN [Suspect]
     Dosage: 1 DF, QPM
     Route: 048
     Dates: start: 20130527, end: 20130527
  5. RIBAVIRIN [Suspect]
     Dosage: 1 DF, QAM
     Route: 048
     Dates: start: 20130528, end: 20130624
  6. RIBAVIRIN [Suspect]
     Dosage: 2 DF, QPM
     Route: 048
     Dates: start: 20130528, end: 20130623
  7. RIBAVIRIN [Suspect]
     Dosage: 2 DF, QAM
     Route: 048
     Dates: start: 20130625, end: 20130719
  8. RIBAVIRIN [Suspect]
     Dosage: 3 DF, QPM
     Route: 048
     Dates: start: 20130624, end: 20130718
  9. RIBAVIRIN [Suspect]
     Dosage: 1 DF, QPM
     Route: 048
     Dates: start: 20130719, end: 20130719
  10. RIBAVIRIN [Suspect]
     Dosage: 1 DF, QAM
     Route: 048
     Dates: start: 20130720, end: 20130909
  11. RIBAVIRIN [Suspect]
     Dosage: 2 DF, QPM
     Route: 048
     Dates: start: 20130720, end: 20130908
  12. PEGINTERFERON ALFA-2A [Suspect]
     Indication: CHRONIC HEPATITIS C
     Dosage: 180 MICROGRAM, QW
     Route: 058
     Dates: start: 20130326

REACTIONS (1)
  - Peritonsillar abscess [Recovered/Resolved]
